FAERS Safety Report 7363827-2 (Version None)
Quarter: 2011Q1

REPORT INFORMATION
  Report Type: 
  Country: None (occurrence: None)
  Receive Date: 20110321
  Receipt Date: 20110315
  Transmission Date: 20110831
  Serious: Yes (Life-Threatening, Hospitalization, Disabling)
  Sender: FDA-Public Use
  Company Number: FR-ROCHE-750055

PATIENT
  Sex: Female
  Weight: 54 kg

DRUGS (15)
  1. OMEPRAZOLE [Concomitant]
     Indication: PROPHYLAXIS
     Route: 048
     Dates: start: 20081217
  2. METHOTREXATE [Suspect]
     Indication: RHEUMATOID ARTHRITIS
     Dosage: FREQUENCY:'6CP/DEMCEINE WEEK'
     Route: 048
     Dates: start: 19950101, end: 20101216
  3. INDAPAMIDE [Concomitant]
     Dates: start: 20081217
  4. SPECIAFOLDINE [Concomitant]
     Dates: start: 20100903
  5. PROTELOS [Concomitant]
     Indication: OSTEOPOROSIS
     Route: 048
     Dates: start: 20101126
  6. TOCILIZUMAB [Suspect]
     Route: 042
     Dates: start: 20100909
  7. TOCILIZUMAB [Suspect]
     Route: 042
     Dates: start: 20101028
  8. CORTANCYL [Concomitant]
     Indication: RHEUMATOID ARTHRITIS
     Route: 048
     Dates: start: 20100105
  9. TOCILIZUMAB [Suspect]
     Route: 042
     Dates: start: 20101001
  10. METHOTREXATE [Suspect]
     Route: 048
  11. OROCAL [Concomitant]
     Dates: start: 20081217
  12. TOCILIZUMAB [Suspect]
     Indication: RHEUMATOID ARTHRITIS
     Dosage: DOSE: 8 MG/KG, MONTHLY DOSE: 432 MG, FORM: INFUSION
     Route: 042
     Dates: start: 20100803
  13. TOCILIZUMAB [Suspect]
     Route: 042
     Dates: start: 20101126, end: 20101126
  14. PIROXICAM [Suspect]
     Indication: RHEUMATOID ARTHRITIS
     Route: 048
     Dates: start: 20100108
  15. UVEDOSE [Concomitant]
     Dosage: FORM: VIAL
     Dates: start: 20081217

REACTIONS (5)
  - DIFFUSE LARGE B-CELL LYMPHOMA [None]
  - PULMONARY EMBOLISM [None]
  - PERITONITIS [None]
  - INTESTINAL PERFORATION [None]
  - DIVERTICULITIS [None]
